FAERS Safety Report 8404371-0 (Version None)
Quarter: 2012Q2

REPORT INFORMATION
  Report Type: 
  Country: None (occurrence: None)
  Receive Date: 20120601
  Receipt Date: 20111112
  Transmission Date: 20120825
  Serious: No
  Sender: FDA-Public Use
  Company Number: US-NOVEN-11US003611

PATIENT
  Age: 11 Year
  Sex: Female

DRUGS (1)
  1. DAYTRANA [Suspect]
     Indication: ATTENTION DEFICIT/HYPERACTIVITY DISORDER
     Dosage: 20 MG, UNK
     Route: 062

REACTIONS (3)
  - PRODUCT QUALITY ISSUE [None]
  - DISTURBANCE IN SOCIAL BEHAVIOUR [None]
  - PRODUCT CONTAINER SEAL ISSUE [None]
